FAERS Safety Report 11596926 (Version 1)
Quarter: 2015Q3

REPORT INFORMATION
  Report Type: Spontaneous
  Country: US (occurrence: US)
  Receive Date: 20150916
  Receipt Date: 20150916
  Transmission Date: 20151125
  Serious: No
  Sender: FDA-Public Use
  Company Number: US-ELI_LILLY_AND_COMPANY-US200801006901

PATIENT
  Age: 70 Year
  Sex: Female

DRUGS (18)
  1. DRIXORAL [Concomitant]
     Active Substance: DEXBROMPHENIRAMINE MALEATE\PSEUDOEPHEDRINE SULFATE
  2. CENTRUM SILVER [Concomitant]
     Active Substance: VITAMINS
  3. VITAMIN B COMPLEX [Concomitant]
     Active Substance: CYANOCOBALAMIN\DEXPANTHENOL\NIACINAMIDE\PYRIDOXINE HYDROCHLORIDE\RIBOFLAVIN 5^-PHOSPHATE SODIUM\THIAMINE HYDROCHLORIDE\VITAMIN B COMPLEX
  4. NIACIN. [Concomitant]
     Active Substance: NIACIN
  5. DIURETICS [Concomitant]
     Active Substance: UNSPECIFIED INGREDIENT
  6. FISH OIL [Concomitant]
     Active Substance: FISH OIL
  7. GLUCOSAMIN /00943604/ [Concomitant]
     Dates: start: 200711
  8. MULTI-VIT [Concomitant]
     Active Substance: VITAMINS
  9. SLOW-MAG [Concomitant]
     Active Substance: MAGNESIUM CHLORIDE
  10. FORTEO [Suspect]
     Active Substance: TERIPARATIDE
     Indication: OSTEOPOROSIS
     Dates: start: 20080102
  11. VITAMIN D [Concomitant]
     Active Substance: CHOLECALCIFEROL
  12. OSCAL [Concomitant]
     Active Substance: CALCIUM CARBONATE
  13. BABY ASPIRIN [Concomitant]
     Active Substance: ASPIRIN
     Dosage: A COUPLE OF TIMES A WEEK
  14. THYROID [Concomitant]
     Active Substance: LEVOTHYROXINE\LIOTHYRONINE
  15. PROTONIX [Concomitant]
     Active Substance: PANTOPRAZOLE SODIUM
  16. VITAMIN B12 [Concomitant]
     Active Substance: CYANOCOBALAMIN
  17. ZINC [Concomitant]
     Active Substance: ZINC\ZINC CHLORIDE
  18. POTASSIUM [Concomitant]
     Active Substance: POTASSIUM

REACTIONS (4)
  - Nausea [Recovered/Resolved]
  - Blood glucose decreased [Recovered/Resolved]
  - Vomiting [Recovered/Resolved]
  - Malaise [Recovered/Resolved]

NARRATIVE: CASE EVENT DATE: 200801
